FAERS Safety Report 5835416-X (Version None)
Quarter: 2008Q3

REPORT INFORMATION
  Report Type: 
  Country: None (occurrence: None)
  Receive Date: 20080804
  Receipt Date: 20080722
  Transmission Date: 20090109
  Serious: Yes (Death)
  Sender: FDA-Public Use
  Company Number: 20085039

PATIENT
  Age: 43 Year
  Sex: Male

DRUGS (1)
  1. LIORESAL [Suspect]
     Indication: MUSCLE SPASTICITY
     Dosage: 1168.1 MCG, DAILY INTRATHECAL
     Route: 037

REACTIONS (2)
  - AMYOTROPHIC LATERAL SCLEROSIS [None]
  - MOTOR NEURONE DISEASE [None]
